FAERS Safety Report 13850752 (Version 2)
Quarter: 2017Q3

REPORT INFORMATION
  Report Type: Spontaneous
  Country: US (occurrence: US)
  Receive Date: 20170809
  Receipt Date: 20170831
  Transmission Date: 20171127
  Serious: Yes (Other)
  Sender: FDA-Public Use
  Company Number: US-LANNETT COMPANY, INC.-US-2017LAN000963

PATIENT

DRUGS (5)
  1. HYDROCHLOROTHIAZIDE; TRIAMTERENE [Suspect]
     Active Substance: HYDROCHLOROTHIAZIDE\TRIAMTERENE
     Indication: DIURETIC THERAPY
     Dosage: 37.5 MG/25 MG, QD
     Route: 048
     Dates: start: 20170602, end: 20170602
  2. LISINOPRIL. [Concomitant]
     Active Substance: LISINOPRIL
     Indication: PRODUCT USED FOR UNKNOWN INDICATION
     Dosage: 40 MG, UNK
     Route: 065
  3. CLONIDINE. [Concomitant]
     Active Substance: CLONIDINE
     Indication: PRODUCT USED FOR UNKNOWN INDICATION
     Dosage: 0.15 MG (0.3MG BROKEN IN HALF), ONE TIME
     Route: 060
  4. HYDROCHLOROTHIAZIDE; TRIAMTERENE [Suspect]
     Active Substance: HYDROCHLOROTHIAZIDE\TRIAMTERENE
     Indication: HYPERTENSION
     Dosage: 37.5 MG/25 MG, QD
     Route: 048
     Dates: start: 20170528, end: 20170601
  5. FLAGYL [Concomitant]
     Active Substance: METRONIDAZOLE\METRONIDAZOLE HYDROCHLORIDE
     Indication: PRODUCT USED FOR UNKNOWN INDICATION
     Dosage: UNK
     Route: 065

REACTIONS (12)
  - Feeling jittery [Unknown]
  - Feeling abnormal [Unknown]
  - Presyncope [Unknown]
  - Dysphonia [Recovering/Resolving]
  - Muscular weakness [Unknown]
  - Hypertension [Recovering/Resolving]
  - Blepharospasm [Unknown]
  - Heart rate increased [Unknown]
  - Nervousness [Unknown]
  - Hypoaesthesia [Unknown]
  - Anxiety [Unknown]
  - Asthenia [Unknown]

NARRATIVE: CASE EVENT DATE: 2017
